FAERS Safety Report 12459463 (Version 6)
Quarter: 2016Q4

REPORT INFORMATION
  Report Type: Spontaneous
  Country: US (occurrence: US)
  Receive Date: 20160613
  Receipt Date: 20161026
  Transmission Date: 20170207
  Serious: No
  Sender: FDA-Public Use
  Company Number: US-GLAXOSMITHKLINE-US2016081880

PATIENT
  Age: 25 Year
  Sex: Female
  Weight: 92.52 kg

DRUGS (2)
  1. LAMICTAL XR [Suspect]
     Active Substance: LAMOTRIGINE
     Indication: EPILEPSY
     Dosage: 400 MG, 1D
     Route: 048
     Dates: start: 2007
  2. KEPPRA [Concomitant]
     Active Substance: LEVETIRACETAM

REACTIONS (9)
  - Postictal state [Recovered/Resolved]
  - Drug dose omission [Recovered/Resolved]
  - Impaired work ability [Recovered/Resolved]
  - Drug ineffective [Unknown]
  - Hypersomnia [Recovered/Resolved]
  - Exposure during pregnancy [Unknown]
  - Live birth [Unknown]
  - Fatigue [Recovered/Resolved]
  - Labour induction [Unknown]

NARRATIVE: CASE EVENT DATE: 201602
